FAERS Safety Report 19659072 (Version 1)
Quarter: 2021Q3

REPORT INFORMATION
  Report Type: Spontaneous
  Country: JP (occurrence: JP)
  Receive Date: 20210805
  Receipt Date: 20210805
  Transmission Date: 20211014
  Serious: Yes (Other)
  Sender: FDA-Public Use
  Company Number: JP-BRISTOL-MYERS SQUIBB COMPANY-BMS-2021-075344

PATIENT
  Age: 89 Year
  Sex: Female

DRUGS (1)
  1. HYDREA [Suspect]
     Active Substance: HYDROXYUREA
     Indication: POLYCYTHAEMIA VERA
     Dosage: UNK UNK, 2 TIMES/WK
     Route: 048

REACTIONS (3)
  - Nephrogenic anaemia [Unknown]
  - Iron deficiency anaemia [Unknown]
  - Off label use [Unknown]
